FAERS Safety Report 15396444 (Version 1)
Quarter: 2018Q3

REPORT INFORMATION
  Report Type: Spontaneous
  Country: US (occurrence: US)
  Receive Date: 20180911
  Receipt Date: 20180911
  Transmission Date: 20181010
  Serious: Yes (Hospitalization)
  Sender: FDA-Public Use
  Company Number: None

PATIENT
  Age: 62 Year
  Sex: Male

DRUGS (1)
  1. TEMOZOLOMIDE 20MG CAP [Suspect]
     Active Substance: TEMOZOLOMIDE
     Route: 048
     Dates: start: 20110911

REACTIONS (3)
  - Fall [None]
  - Dizziness [None]
  - Balance disorder [None]

NARRATIVE: CASE EVENT DATE: 20180830
